FAERS Safety Report 13108457 (Version 1)
Quarter: 2017Q1

REPORT INFORMATION
  Report Type: Spontaneous
  Country: US (occurrence: US)
  Receive Date: 20170112
  Receipt Date: 20170112
  Transmission Date: 20170428
  Serious: Yes (Death)
  Sender: FDA-Public Use
  Company Number: US-APOTEX-2017AP005574

PATIENT
  Age: 31 Year
  Sex: Female

DRUGS (2)
  1. FENTANYL. [Suspect]
     Active Substance: FENTANYL
     Indication: PRODUCT USED FOR UNKNOWN INDICATION
     Route: 051
  2. FENTANYL. [Suspect]
     Active Substance: FENTANYL
     Route: 051

REACTIONS (1)
  - Drug abuse [Fatal]
